FAERS Safety Report 20298696 (Version 1)
Quarter: 2022Q1

REPORT INFORMATION
  Report Type: Spontaneous
  Country: US (occurrence: None)
  Receive Date: 20220104
  Receipt Date: 20220104
  Transmission Date: 20220423
  Serious: Yes (Hospitalization)
  Sender: FDA-Public Use
  Company Number: None

PATIENT
  Sex: Female

DRUGS (1)
  1. AMBRISENTAN [Suspect]
     Active Substance: AMBRISENTAN
     Indication: Rash
     Dosage: FREQUENCY : DAILY;?
     Route: 048
     Dates: start: 202102

REACTIONS (2)
  - Dyspnoea [None]
  - Dizziness [None]
